FAERS Safety Report 6231551-5 (Version None)
Quarter: 2009Q2

REPORT INFORMATION
  Report Type: 
  Country: None (occurrence: None)
  Receive Date: 20090616
  Receipt Date: 20090604
  Transmission Date: 20091009
  Serious: Yes (Hospitalization)
  Sender: FDA-Public Use
  Company Number: FR-ELI_LILLY_AND_COMPANY-FR200906000995

PATIENT
  Age: 76 Year
  Sex: Female

DRUGS (7)
  1. GEMZAR [Suspect]
     Indication: BLADDER CANCER
     Dosage: UNK, DAY ONE OF 28 DAY CYCLE
     Route: 042
     Dates: start: 20090130
  2. CARBOPLATIN [Concomitant]
     Indication: BREAST CANCER
     Dosage: UNK,  DAY ONE OF 28 DAY CYCLE
     Route: 042
     Dates: start: 20090130
  3. COZAAR [Concomitant]
     Dosage: 50 MG, DAILY (1/D)
     Route: 048
  4. TENORMIN [Concomitant]
     Dosage: 50 MG, DAILY (1/D)
     Route: 048
     Dates: start: 20090414
  5. ADANCOR [Concomitant]
     Dosage: 10 MG, DAILY (1/D)
     Route: 065
     Dates: start: 20090414
  6. TRAMADOL /00599202/ [Concomitant]
     Dosage: 100 MG, DAILY (1/D)
     Route: 048
  7. KARDEGIC [Concomitant]
     Dosage: UNK, UNKNOWN
     Route: 065

REACTIONS (4)
  - CAPILLARY LEAK SYNDROME [None]
  - GENERALISED OEDEMA [None]
  - RENAL FAILURE ACUTE [None]
  - WEIGHT INCREASED [None]
